FAERS Safety Report 11513584 (Version 1)
Quarter: 2015Q3

REPORT INFORMATION
  Report Type: Spontaneous
  Country: US (occurrence: US)
  Receive Date: 20150903
  Receipt Date: 20150903
  Transmission Date: 20151125
  Serious: No
  Sender: FDA-Public Use
  Company Number: US-ELI_LILLY_AND_COMPANY-US201210009679

PATIENT
  Age: 50 Year
  Sex: Female

DRUGS (1)
  1. CYMBALTA [Suspect]
     Active Substance: DULOXETINE HYDROCHLORIDE
     Indication: FIBROMYALGIA
     Dosage: 60 MG, BID
     Dates: start: 20100707, end: 201209

REACTIONS (13)
  - Feeling cold [Unknown]
  - Sleep terror [Unknown]
  - Middle insomnia [Unknown]
  - Insomnia [Unknown]
  - Nausea [Unknown]
  - Intentional product misuse [Unknown]
  - Paraesthesia [Unknown]
  - Tremor [Unknown]
  - Asthenia [Unknown]
  - Drug withdrawal syndrome [Unknown]
  - Paranoia [Unknown]
  - Postural orthostatic tachycardia syndrome [Unknown]
  - Palpitations [Unknown]
